FAERS Safety Report 20648648 (Version 1)
Quarter: 2022Q1

REPORT INFORMATION
  Report Type: Spontaneous
  Country: US (occurrence: None)
  Receive Date: 20220328
  Receipt Date: 20220328
  Transmission Date: 20220424
  Serious: Yes (Hospitalization)
  Sender: FDA-Public Use
  Company Number: None

PATIENT
  Age: 67 Year
  Sex: Female
  Weight: 93.4 kg

DRUGS (2)
  1. ACTEMRA [Suspect]
     Active Substance: TOCILIZUMAB
     Indication: COVID-19
     Dosage: OTHER FREQUENCY : ONE TIME DOSE;?
     Route: 041
     Dates: start: 20220313, end: 20220313
  2. ACTEMRA [Concomitant]
     Active Substance: TOCILIZUMAB
     Dates: start: 20220313, end: 20220313

REACTIONS (6)
  - Pseudomonal bacteraemia [None]
  - Pseudomonas test positive [None]
  - Klebsiella test positive [None]
  - Haemophilus test positive [None]
  - Infection [None]
  - Pneumonia [None]

NARRATIVE: CASE EVENT DATE: 20220323
